FAERS Safety Report 12079568 (Version 3)
Quarter: 2016Q3

REPORT INFORMATION
  Report Type: Spontaneous
  Country: FR (occurrence: FR)
  Receive Date: 20160216
  Receipt Date: 20160719
  Transmission Date: 20161109
  Serious: Yes (Life-Threatening, Hospitalization)
  Sender: FDA-Public Use
  Company Number: FR-PFIZER INC-2016079585

PATIENT
  Age: 28 Year
  Sex: Female
  Weight: 85.5 kg

DRUGS (16)
  1. BACLOFEN. [Suspect]
     Active Substance: BACLOFEN
     Indication: TOXICITY TO VARIOUS AGENTS
     Dosage: 96 DF, SINGLE
     Route: 048
     Dates: start: 20160117, end: 20160117
  2. ZYRTEC [Suspect]
     Active Substance: CETIRIZINE HYDROCHLORIDE
     Indication: TOXICITY TO VARIOUS AGENTS
     Dosage: 15 DF, SINGLE
     Route: 048
     Dates: start: 20160117, end: 20160117
  3. ASPIRINE [Concomitant]
     Active Substance: ASPIRIN
     Dosage: 14 DF, SINGLE (1000MG)
     Route: 048
     Dates: start: 20160117, end: 20160117
  4. VENLAFAXINE HCL [Suspect]
     Active Substance: VENLAFAXINE HYDROCHLORIDE
     Dosage: 88 DF, SINGLE
     Route: 048
     Dates: start: 20160117, end: 20160117
  5. XEROQUEL [Suspect]
     Active Substance: QUETIAPINE FUMARATE
     Indication: TOXICITY TO VARIOUS AGENTS
     Dosage: 40 DF, SINGLE
     Route: 048
     Dates: start: 20160117, end: 20160117
  6. DAFLON /00426001/ [Concomitant]
     Active Substance: DIOSMIN
     Dosage: 80 DF, SINGLE
     Route: 048
     Dates: start: 20160117, end: 20160117
  7. DOLIPRANE [Concomitant]
     Active Substance: ACETAMINOPHEN
     Dosage: 8 DF, SINGLE
     Route: 048
     Dates: start: 20160117, end: 20160117
  8. ALPRAZOLAM. [Suspect]
     Active Substance: ALPRAZOLAM
     Indication: TOXICITY TO VARIOUS AGENTS
     Dosage: 17.5 MG, SINGLE (70 DF)
     Route: 048
     Dates: start: 20160117, end: 20160117
  9. PYOSTACINE [Concomitant]
     Active Substance: PRISTINAMYCIN
     Dosage: 16 DF, SINGLE
     Route: 048
     Dates: start: 20160117, end: 20160117
  10. KETUM [Concomitant]
     Active Substance: KETOPROFEN
     Dosage: 17 DF, SINGLE
     Route: 048
     Dates: start: 20160117, end: 20160117
  11. NALTREXONE [Concomitant]
     Active Substance: NALTREXONE
     Dosage: 40 DF, SINGLE
     Route: 048
     Dates: start: 20160117, end: 20160117
  12. ATARAX [Suspect]
     Active Substance: HYDROXYZINE\HYDROXYZINE HYDROCHLORIDE
     Indication: TOXICITY TO VARIOUS AGENTS
     Dosage: 32 DF, SINGLE
     Route: 048
     Dates: start: 20160117, end: 20160117
  13. THERALENE [Suspect]
     Active Substance: TRIMEPRAZINE
     Indication: TOXICITY TO VARIOUS AGENTS
     Dosage: 43 DF, SINGLE
     Route: 048
     Dates: start: 20160117, end: 20160117
  14. CLOTIAZEPAM [Suspect]
     Active Substance: CLOTIAZEPAM
     Dosage: 18 DF, SINGLE
     Route: 048
     Dates: start: 20160117, end: 20160117
  15. SPASFON /00765801/ [Concomitant]
     Active Substance: PHLOROGLUCINOL\1,3,5-TRIMETHOXYBENZENE
     Dosage: 20 DF, SINGLE
     Route: 048
     Dates: start: 20160117, end: 20160117
  16. SULFARLEM [Concomitant]
     Active Substance: ANETHOLTRITHION
     Dosage: 150 DF, SINGLE
     Route: 048
     Dates: start: 20160117, end: 20160117

REACTIONS (8)
  - Overdose [Recovered/Resolved]
  - Drug withdrawal convulsions [Recovered/Resolved]
  - Seizure [Recovered/Resolved]
  - Hepatocellular injury [Recovered/Resolved]
  - Coma [Recovered/Resolved]
  - Electrocardiogram QT prolonged [Recovered/Resolved]
  - Toxicity to various agents [Recovered/Resolved]
  - Alcohol withdrawal syndrome [Recovered/Resolved]

NARRATIVE: CASE EVENT DATE: 20160117
